FAERS Safety Report 12158989 (Version 1)
Quarter: 2016Q1

REPORT INFORMATION
  Report Type: Spontaneous
  Country: AU (occurrence: AU)
  Receive Date: 20160308
  Receipt Date: 20160308
  Transmission Date: 20160526
  Serious: Yes (Other)
  Sender: FDA-Public Use
  Company Number: AU-009507513-1603AUS001197

PATIENT
  Age: 46 Year
  Sex: Male

DRUGS (4)
  1. CEFAZOLIN SODIUM. [Suspect]
     Active Substance: CEFAZOLIN SODIUM
     Dosage: 2 G, UNK
     Dates: start: 20150826
  2. ROCURONIUM BROMIDE. [Suspect]
     Active Substance: ROCURONIUM BROMIDE
     Dosage: 50 MG, UNK
     Dates: start: 20150826
  3. FENTANYL. [Concomitant]
     Active Substance: FENTANYL
  4. PROPOFOL. [Concomitant]
     Active Substance: PROPOFOL

REACTIONS (2)
  - Hypotension [Unknown]
  - Urticaria [Unknown]

NARRATIVE: CASE EVENT DATE: 20150826
